FAERS Safety Report 21795241 (Version 1)
Quarter: 2022Q4

REPORT INFORMATION
  Report Type: Report from Study
  Country: IT (occurrence: IT)
  Receive Date: 20221229
  Receipt Date: 20221229
  Transmission Date: 20230112
  Serious: Yes (Other)
  Sender: FDA-Public Use
  Company Number: None

PATIENT
  Age: 82 Year
  Sex: Male

DRUGS (5)
  1. INLYTA [Suspect]
     Active Substance: AXITINIB
     Dosage: FREQUENCY OF ADMINISTRATION: DAILY ROUTE OF ADMINISTRATION: ORAL
     Route: 048
     Dates: start: 20210816, end: 20211203
  2. NEBIVOLOL [Concomitant]
     Active Substance: NEBIVOLOL
     Dosage: DOSAGE: 2.5 UNIT OF MEASUREMENT: MILLIGRAMS ROUTE OF ADMINISTRATION: ORAL
     Route: 048
  3. TAMSULOSIN HYDROCHLORIDE [Concomitant]
     Active Substance: TAMSULOSIN HYDROCHLORIDE
     Dosage: ROUTE OF ADMINISTRATION: ORAL
     Route: 048
  4. KEYTRUDA [Concomitant]
     Active Substance: PEMBROLIZUMAB
     Dates: start: 20210816
  5. AMLODIPINE [Concomitant]
     Active Substance: AMLODIPINE BESYLATE
     Dosage: ROUTE OF ADMINISTRATION: ORAL
     Route: 048

REACTIONS (1)
  - Renal vein embolism [Recovered/Resolved]

NARRATIVE: CASE EVENT DATE: 20211125
